FAERS Safety Report 14710432 (Version 6)
Quarter: 2019Q2

REPORT INFORMATION
  Report Type: Spontaneous
  Country: CA (occurrence: CA)
  Receive Date: 20180403
  Receipt Date: 20190607
  Transmission Date: 20190711
  Serious: Yes (Hospitalization)
  Sender: FDA-Public Use
  Company Number: CA-PFIZER INC-2017494422

PATIENT
  Age: 57 Year
  Sex: Male

DRUGS (9)
  1. ATIVAN [Suspect]
     Active Substance: LORAZEPAM
     Indication: FEAR OF INJECTION
  2. CYMBALTA [Concomitant]
     Active Substance: DULOXETINE HYDROCHLORIDE
     Dosage: 30 MG, UNK
     Route: 048
     Dates: start: 2015
  3. INFLECTRA [Suspect]
     Active Substance: INFLIXIMAB-DYYB
     Indication: ANKYLOSING SPONDYLITIS
     Dosage: 270 MG, EVERY 0, 2, 6 THEN EVERY 8 WEEKS
     Route: 042
     Dates: start: 20160811, end: 20161129
  4. CELEBREX [Suspect]
     Active Substance: CELECOXIB
     Dosage: 200 MG, 2X/DAY
     Dates: start: 2000
  5. TYLENOL [Concomitant]
     Active Substance: ACETAMINOPHEN
     Dosage: UNK, AS NEEDED
  6. GABAPENTIN. [Suspect]
     Active Substance: GABAPENTIN
     Indication: NEURALGIA
     Dosage: UNK
     Route: 065
  7. INFLECTRA [Suspect]
     Active Substance: INFLIXIMAB-DYYB
     Dosage: 282 MG, EVERY 8 WEEKS
     Route: 042
     Dates: start: 20170627, end: 20180206
  8. ATIVAN [Suspect]
     Active Substance: LORAZEPAM
     Indication: PREMEDICATION
     Dosage: UNK
  9. FLUOXETINE [Concomitant]
     Active Substance: FLUOXETINE HYDROCHLORIDE
     Dosage: UNK
     Route: 065

REACTIONS (8)
  - Asthenia [Unknown]
  - Pneumonia [Not Recovered/Not Resolved]
  - Dissociation [Unknown]
  - Depression [Unknown]
  - Gait disturbance [Not Recovered/Not Resolved]
  - Stab wound [Recovered/Resolved]
  - Loss of consciousness [Unknown]
  - Chronic obstructive pulmonary disease [Unknown]
